FAERS Safety Report 5928411-3 (Version None)
Quarter: 2008Q4

REPORT INFORMATION
  Report Type: 
  Country: None (occurrence: None)
  Receive Date: 20081023
  Receipt Date: 20081015
  Transmission Date: 20090506
  Serious: Yes (Hospitalization)
  Sender: FDA-Public Use
  Company Number: SG-PFIZER INC-2008087680

PATIENT
  Sex: Male

DRUGS (8)
  1. IRINOTECAN HCL [Suspect]
     Indication: COLORECTAL CANCER
     Route: 042
  2. BLINDED SU11248 (SU011248) [Suspect]
     Indication: COLORECTAL CANCER
     Route: 048
  3. FLUOROURACIL [Suspect]
     Indication: COLORECTAL CANCER
     Route: 042
  4. LEUCOVORIN CALCIUM [Suspect]
     Indication: COLORECTAL CANCER
     Route: 042
  5. DEXAMETHASONE [Suspect]
  6. ATENOLOL [Concomitant]
     Indication: HYPERTENSION
     Dosage: DAILY DOSE:100MG-FREQ:ONCE EVERY MORNING
     Dates: start: 19800101
  7. SIMVASTATIN [Concomitant]
     Indication: HYPERLIPIDAEMIA
     Dosage: DAILY DOSE:10MG-FREQ:ONCE EVERY MORNING
     Dates: start: 19800101
  8. FELODIPINE [Concomitant]
     Indication: HYPERTENSION
     Dosage: DAILY DOSE:5MG-FREQ:ONCE EVERY MORNING
     Dates: start: 19800101

REACTIONS (1)
  - MUSCULAR WEAKNESS [None]
